FAERS Safety Report 5447452-6 (Version None)
Quarter: 2007Q3

REPORT INFORMATION
  Report Type: 
  Country: None (occurrence: None)
  Receive Date: 20070905
  Receipt Date: 20070905
  Transmission Date: 20080115
  Serious: Yes (Hospitalization)
  Sender: FDA-Public Use
  Company Number: None

PATIENT
  Sex: Male
  Weight: 114 kg

DRUGS (2)
  1. PHENYTOIN [Suspect]
     Indication: CEREBROVASCULAR ACCIDENT
     Dosage: 400 MG, 500 MG QAM, QPM PO
     Route: 048
     Dates: start: 20060101
  2. PHENYTOIN [Suspect]
     Indication: CONVULSION PROPHYLAXIS
     Dosage: 400 MG, 500 MG QAM, QPM PO
     Route: 048
     Dates: start: 20060101

REACTIONS (7)
  - ABDOMINAL PAIN [None]
  - ALANINE AMINOTRANSFERASE INCREASED [None]
  - ASPARTATE AMINOTRANSFERASE INCREASED [None]
  - BLOOD BILIRUBIN INCREASED [None]
  - DRUG RASH WITH EOSINOPHILIA AND SYSTEMIC SYMPTOMS [None]
  - GALLBLADDER DISORDER [None]
  - HEPATOMEGALY [None]
